FAERS Safety Report 7652781-1 (Version None)
Quarter: 2011Q3

REPORT INFORMATION
  Report Type: 
  Country: None (occurrence: None)
  Receive Date: 20110803
  Receipt Date: 20110724
  Transmission Date: 20111222
  Serious: Yes (Other)
  Sender: FDA-Public Use
  Company Number: GR-JNJFOC-20110712352

PATIENT

DRUGS (3)
  1. IRINOTECAN HCL [Suspect]
     Indication: LUNG NEOPLASM MALIGNANT
     Dosage: 90-MIN INFUSION
     Route: 042
  2. ANTIEMETIC [Concomitant]
     Route: 065
  3. DOXORUBICIN HYDROCHLORIDE [Suspect]
     Indication: LUNG NEOPLASM MALIGNANT
     Dosage: 1 HOUR INTRAVENOUS INFUSION
     Route: 042

REACTIONS (2)
  - NEUROTOXICITY [None]
  - OFF LABEL USE [None]
